FAERS Safety Report 10016255 (Version 1)
Quarter: 2014Q1

REPORT INFORMATION
  Report Type: Spontaneous
  Country: US (occurrence: US)
  Receive Date: 20140317
  Receipt Date: 20140317
  Transmission Date: 20141002
  Serious: No
  Sender: FDA-Public Use
  Company Number: US-009507513-1403USA005774

PATIENT
  Sex: Female

DRUGS (1)
  1. NUVARING [Suspect]
     Dosage: 3 WEEK IN 1 WEEK OUT
     Route: 067
     Dates: start: 20140228

REACTIONS (1)
  - Inappropriate schedule of drug administration [Unknown]
